FAERS Safety Report 7739300-6 (Version None)
Quarter: 2011Q3

REPORT INFORMATION
  Report Type: 
  Country: None (occurrence: None)
  Receive Date: 20110909
  Receipt Date: 20100713
  Transmission Date: 20111222
  Serious: No
  Sender: FDA-Public Use
  Company Number: US-BAYER-201029989NA

PATIENT
  Age: 20 Year
  Sex: Female

DRUGS (1)
  1. MIRENA [Suspect]
     Indication: CONTRACEPTION
     Dosage: 20 ?G/D, CONT
     Route: 015
     Dates: start: 20100712

REACTIONS (5)
  - ABDOMINAL PAIN LOWER [None]
  - NERVOUSNESS [None]
  - NAUSEA [None]
  - UTERINE SPASM [None]
  - HYPERHIDROSIS [None]
